FAERS Safety Report 22060347 (Version 1)
Quarter: 2023Q1

REPORT INFORMATION
  Report Type: Spontaneous
  Country: US (occurrence: US)
  Receive Date: 20230303
  Receipt Date: 20230303
  Transmission Date: 20230417
  Serious: Yes (Other)
  Sender: FDA-Public Use
  Company Number: US-PFIZER INC-202300087711

PATIENT
  Age: 82 Year
  Sex: Male

DRUGS (2)
  1. CIBINQO [Suspect]
     Active Substance: ABROCITINIB
     Indication: Eczema
     Dosage: 100 MG
  2. CIBINQO [Suspect]
     Active Substance: ABROCITINIB
     Dosage: 200 MG

REACTIONS (6)
  - Cataract [Unknown]
  - Lung operation [Unknown]
  - Chronic obstructive pulmonary disease [Unknown]
  - Musculoskeletal stiffness [Unknown]
  - Muscular weakness [Unknown]
  - Feeling abnormal [Unknown]

NARRATIVE: CASE EVENT DATE: 20230201
